FAERS Safety Report 24705201 (Version 1)
Quarter: 2024Q4

REPORT INFORMATION
  Report Type: Spontaneous
  Country: US (occurrence: US)
  Receive Date: 20241206
  Receipt Date: 20241206
  Transmission Date: 20250115
  Serious: Yes (Hospitalization, Other)
  Sender: AUROBINDO
  Company Number: US-MLMSERVICE-20241115-PI258817-00225-1

PATIENT
  Age: 24 Year
  Sex: Male

DRUGS (1)
  1. MINOXIDIL [Suspect]
     Active Substance: MINOXIDIL
     Indication: Alopecia
     Dosage: 1500 MILLIGRAM (DRANK APPROXIMATELY ONE OUNCE OF 5% TOPICAL MINOXIDIL (CONSUMED APPROXIMATELY 1500MG
     Route: 048

REACTIONS (8)
  - Acute kidney injury [Recovering/Resolving]
  - Mental status changes [Unknown]
  - Sinus tachycardia [Unknown]
  - Tachypnoea [Unknown]
  - Somnolence [Unknown]
  - Dyskinesia [Unknown]
  - Incorrect route of product administration [Unknown]
  - Accidental overdose [Recovering/Resolving]
